FAERS Safety Report 23539554 (Version 1)
Quarter: 2024Q1

REPORT INFORMATION
  Report Type: Spontaneous
  Country: US (occurrence: US)
  Receive Date: 20240219
  Receipt Date: 20240219
  Transmission Date: 20240409
  Serious: No
  Sender: FDA-Public Use
  Company Number: US-CTI BIOPHARMA-2024US04438

PATIENT

DRUGS (10)
  1. VONJO [Suspect]
     Active Substance: PACRITINIB
     Indication: Myelofibrosis
     Dosage: 200 MG, BID
     Route: 048
  2. METOPROLOL [Concomitant]
     Active Substance: METOPROLOL
  3. ALLOPURINOL [Concomitant]
     Active Substance: ALLOPURINOL
  4. FOLIC ACID [Concomitant]
     Active Substance: FOLIC ACID
  5. DULOXETINE [Concomitant]
     Active Substance: DULOXETINE
  6. GABAPENTIN [Concomitant]
     Active Substance: GABAPENTIN
  7. LOSARTAN [Concomitant]
     Active Substance: LOSARTAN
  8. OXYCODONE [Concomitant]
     Active Substance: OXYCODONE\OXYCODONE HYDROCHLORIDE
  9. FUROSEMIDE [Concomitant]
     Active Substance: FUROSEMIDE
  10. HYDROXYZINE [Concomitant]
     Active Substance: HYDROXYZINE HYDROCHLORIDE

REACTIONS (4)
  - Abdominal pain [Unknown]
  - Abdominal distension [Unknown]
  - Splenomegaly [Unknown]
  - Product dose omission issue [Unknown]
